FAERS Safety Report 23088592 (Version 1)
Quarter: 2023Q4

REPORT INFORMATION
  Report Type: Spontaneous
  Country: US (occurrence: US)
  Receive Date: 20231020
  Receipt Date: 20231020
  Transmission Date: 20240110
  Serious: Yes (Life-Threatening, Hospitalization, Other)
  Sender: FDA-Public Use
  Company Number: US-STRIDES ARCOLAB LIMITED-2023SP015776

PATIENT
  Age: 25 Year
  Sex: Female

DRUGS (4)
  1. NALOXONE [Suspect]
     Active Substance: NALOXONE
     Indication: Drug use disorder
     Dosage: UNK
     Route: 065
  2. GABAPENTIN [Suspect]
     Active Substance: GABAPENTIN
     Indication: Product used for unknown indication
     Dosage: UNK
     Route: 065
  3. OXYCODONE [Suspect]
     Active Substance: OXYCODONE
     Indication: Product used for unknown indication
     Dosage: UNK
     Route: 065
  4. FENTANYL [Suspect]
     Active Substance: FENTANYL
     Indication: Product used for unknown indication
     Dosage: UNK
     Route: 065

REACTIONS (10)
  - Septic shock [Recovered/Resolved]
  - Pneumonia streptococcal [Recovered/Resolved]
  - Acute respiratory distress syndrome [Recovered/Resolved]
  - Pharyngeal abscess [Recovered/Resolved]
  - Pneumothorax [Recovered/Resolved]
  - Lung infiltration [Recovered/Resolved]
  - Premature delivery [Unknown]
  - Respiratory failure [Unknown]
  - Overdose [Unknown]
  - Maternal exposure during pregnancy [Unknown]
